FAERS Safety Report 5121856-3 (Version None)
Quarter: 2006Q4

REPORT INFORMATION
  Report Type: 
  Country: None (occurrence: None)
  Receive Date: 20061006
  Receipt Date: 20060918
  Transmission Date: 20070319
  Serious: Yes (Disabling, Other)
  Sender: FDA-Public Use
  Company Number: 2006CG01514

PATIENT
  Age: 7093 Day
  Sex: Female
  Weight: 53 kg

DRUGS (1)
  1. ZOMIGORO [Suspect]
     Indication: HEADACHE
     Route: 048
     Dates: start: 20060917, end: 20060917

REACTIONS (4)
  - MALAISE [None]
  - NAUSEA [None]
  - RESPIRATORY DISORDER [None]
  - TACHYCARDIA [None]
